FAERS Safety Report 8421524 (Version 2)
Quarter: 2013Q3

REPORT INFORMATION
  Report Type: Report from Study
  Country: MX (occurrence: MX)
  Receive Date: 20120222
  Receipt Date: 20130814
  Transmission Date: 20140515
  Serious: Yes (Other)
  Sender: FDA-Public Use
  Company Number: PHHY2012MX014293

PATIENT
  Age: 65 Year
  Sex: Female

DRUGS (4)
  1. ACLASTA [Suspect]
     Indication: OSTEOPOROSIS
     Dosage: 5 MG/100 ML
     Route: 042
     Dates: start: 201110
  2. MELOXICAM [Concomitant]
     Indication: PAIN
     Dosage: 1 DF, UNK
     Dates: start: 201202
  3. DICLOFENAC [Concomitant]
     Indication: ANTIINFLAMMATORY THERAPY
     Dosage: 1 DF, UNK
  4. CHOLESTYRAMINE [Concomitant]
     Indication: ANTIINFLAMMATORY THERAPY
     Dosage: 1 DF, UNK

REACTIONS (7)
  - Blood pressure increased [Not Recovered/Not Resolved]
  - Chest pain [Not Recovered/Not Resolved]
  - Overweight [Not Recovered/Not Resolved]
  - Insomnia [Not Recovered/Not Resolved]
  - Musculoskeletal pain [Not Recovered/Not Resolved]
  - Headache [Not Recovered/Not Resolved]
  - Arthralgia [Recovered/Resolved]
